FAERS Safety Report 25250895 (Version 1)
Quarter: 2025Q2

REPORT INFORMATION
  Report Type: Spontaneous
  Country: IT (occurrence: IT)
  Receive Date: 20250429
  Receipt Date: 20250429
  Transmission Date: 20250716
  Serious: Yes (Other)
  Sender: AUROBINDO
  Company Number: IT-AUROBINDO-AUR-APL-2022-002950

PATIENT
  Age: 68 Year
  Sex: Female

DRUGS (26)
  1. LOPERAMIDE [Suspect]
     Active Substance: LOPERAMIDE
     Indication: Diarrhoea
     Route: 065
  2. LETROZOLE [Suspect]
     Active Substance: LETROZOLE
     Indication: Breast cancer
     Route: 065
     Dates: start: 2017, end: 20200514
  3. LETROZOLE [Suspect]
     Active Substance: LETROZOLE
     Indication: HER2 negative breast cancer
  4. PACLITAXEL [Suspect]
     Active Substance: PACLITAXEL
     Indication: Breast cancer
     Route: 065
  5. PACLITAXEL [Suspect]
     Active Substance: PACLITAXEL
     Indication: HER2 negative breast cancer
  6. FULVESTRANT [Suspect]
     Active Substance: FULVESTRANT
     Indication: Breast cancer
     Route: 065
  7. FULVESTRANT [Suspect]
     Active Substance: FULVESTRANT
     Indication: Breast cancer metastatic
  8. EPIRUBICIN [Suspect]
     Active Substance: EPIRUBICIN
     Indication: Breast cancer
     Route: 065
  9. EPIRUBICIN [Suspect]
     Active Substance: EPIRUBICIN
     Indication: HER2 negative breast cancer
  10. CYCLOPHOSPHAMIDE [Suspect]
     Active Substance: CYCLOPHOSPHAMIDE
     Indication: Breast cancer
     Route: 065
  11. CYCLOPHOSPHAMIDE [Suspect]
     Active Substance: CYCLOPHOSPHAMIDE
     Indication: HER2 negative breast cancer
  12. ABEMACICLIB [Suspect]
     Active Substance: ABEMACICLIB
     Indication: Breast cancer
     Dosage: 150 MILLIGRAM, TWO TIMES A DAY
     Route: 065
  13. ABEMACICLIB [Suspect]
     Active Substance: ABEMACICLIB
     Indication: HER2 negative breast cancer
     Dosage: 100 MILLIGRAM, TWO TIMES A DAY
     Route: 065
  14. BROCCOLI [Suspect]
     Active Substance: BROCCOLI
     Indication: Nutritional supplementation
     Dosage: 250 MILLIGRAM, TWO TIMES A DAY
     Route: 065
  15. GARLIC [Suspect]
     Active Substance: GARLIC
     Indication: Nutritional supplementation
     Dosage: 500 MILLIGRAM, TWO TIMES A DAY
     Route: 065
  16. VITAMIN D [Suspect]
     Active Substance: VITAMIN D NOS
     Indication: Vitamin supplementation
     Route: 065
  17. VITAMIN C [Suspect]
     Active Substance: ASCORBIC ACID
     Indication: Nutritional supplementation
     Dosage: 500 MILLIGRAM, ONCE A DAY
     Route: 065
  18. ALPHA LIPOIC ACID [Suspect]
     Active Substance: .ALPHA.-LIPOIC ACID
     Indication: Nutritional supplementation
     Dosage: 100 MILLIGRAM, ONCE A DAY
     Route: 065
  19. COENZYME Q10 [Suspect]
     Active Substance: DIETARY SUPPLEMENT\UBIDECARENONE
     Indication: Nutritional supplementation
     Dosage: 100 MILLIGRAM, ONCE A DAY
     Route: 065
  20. VITAMIN K [Suspect]
     Active Substance: PHYTONADIONE
     Indication: Vitamin supplementation
     Dosage: 250 MCG, ONCE A DAY
     Route: 065
  21. SELENIUM [Suspect]
     Active Substance: SELENIUM
     Indication: Product used for unknown indication
     Dosage: 75 MCG, ONCE A DAY
     Route: 065
  22. IODINE [Suspect]
     Active Substance: IODINE
     Indication: Nutritional supplementation
     Dosage: 150 MCG, ONCE A DAY
     Route: 065
  23. CURCUMIN [Suspect]
     Active Substance: CURCUMIN
     Indication: Nutritional supplementation
     Route: 065
  24. EVEROLIMUS [Concomitant]
     Active Substance: EVEROLIMUS
     Indication: Product used for unknown indication
     Route: 065
  25. EXEMESTANE [Concomitant]
     Active Substance: EXEMESTANE
     Indication: Product used for unknown indication
     Route: 065
  26. TEA [Concomitant]
     Active Substance: TEA LEAF
     Indication: Product used for unknown indication
     Route: 065

REACTIONS (4)
  - Diarrhoea [Recovering/Resolving]
  - Nephropathy toxic [Unknown]
  - Drug ineffective [Unknown]
  - Drug interaction [Recovering/Resolving]
